FAERS Safety Report 23778701 (Version 2)
Quarter: 2024Q2

REPORT INFORMATION
  Report Type: Report from Study
  Country: CA (occurrence: CA)
  Receive Date: 20240424
  Receipt Date: 20240518
  Transmission Date: 20240715
  Serious: No
  Sender: FDA-Public Use
  Company Number: CA-ABBVIE-5726151

PATIENT
  Age: 82 Year
  Sex: Female
  Weight: 50.7 kg

DRUGS (15)
  1. UPADACITINIB [Suspect]
     Active Substance: UPADACITINIB
     Indication: Dermatitis atopic
     Route: 048
     Dates: start: 20220713
  2. PROLIA [Concomitant]
     Active Substance: DENOSUMAB
     Indication: Prophylaxis
     Dosage: DOSAGE: 60 MG/ML
     Route: 058
     Dates: start: 2016
  3. CALCIUM\VITAMIN D [Concomitant]
     Active Substance: CALCIUM\VITAMIN D
     Indication: Prophylaxis
     Dosage: 1 TABLET
     Route: 048
     Dates: start: 2007
  4. DEXILANT [Concomitant]
     Active Substance: DEXLANSOPRAZOLE
     Indication: Hiatus hernia
     Route: 048
     Dates: start: 2012
  5. LIPITOR [Concomitant]
     Active Substance: ATORVASTATIN CALCIUM
     Indication: Dyslipidaemia
     Route: 048
     Dates: start: 2007
  6. VITAMIN B12 [Concomitant]
     Active Substance: CYANOCOBALAMIN
     Indication: Anaemia
     Route: 048
     Dates: start: 201501
  7. OXAZEPAM [Concomitant]
     Active Substance: OXAZEPAM
     Indication: Insomnia
     Route: 048
     Dates: start: 2007
  8. IRBESARTAN [Concomitant]
     Active Substance: IRBESARTAN
     Indication: Hypertension
     Route: 048
     Dates: start: 1967
  9. INDAPAMIDE [Concomitant]
     Active Substance: INDAPAMIDE
     Indication: Hypertension
     Route: 048
     Dates: start: 20220906
  10. TYLENOL [Concomitant]
     Active Substance: ACETAMINOPHEN
     Indication: Insomnia
     Dosage: TIME INTERVAL: AS NECESSARY: 1 TABLET /NIGHTIME
     Route: 048
     Dates: start: 2021, end: 202403
  11. COSMETICS [Concomitant]
     Active Substance: COSMETICS
     Indication: Dermatitis atopic
     Dosage: TIME INTERVAL: AS NECESSARY: 1 APPLICATION/MOISTURIZING
     Route: 061
     Dates: start: 20221102
  12. UREMOL [Concomitant]
     Active Substance: UREA
     Indication: Xerosis
     Dosage: TIME INTERVAL: AS NECESSARY: 1 APLLICATION
     Route: 061
     Dates: start: 20230529
  13. FUROSEMIDE [Concomitant]
     Active Substance: FUROSEMIDE
     Indication: Prophylaxis
     Route: 048
     Dates: start: 202311
  14. GINGER [Concomitant]
     Active Substance: GINGER
     Indication: Dyspepsia
     Dosage: TIME INTERVAL: AS NECESSARY: 1 TABLET
     Route: 048
     Dates: start: 202311
  15. SLOW K [Concomitant]
     Active Substance: POTASSIUM CHLORIDE
     Indication: Hypokalaemia
     Dosage: 1 TABLET?K 1500 20MEQ
     Dates: start: 202403

REACTIONS (2)
  - Actinic keratosis [Recovered/Resolved]
  - Dizziness [Recovered/Resolved]

NARRATIVE: CASE EVENT DATE: 20240301
